FAERS Safety Report 8971647 (Version 1)
Quarter: 2012Q4

REPORT INFORMATION
  Report Type: 
  Country: US (occurrence: US)
  Receive Date: 20121217
  Receipt Date: 20121217
  Transmission Date: 20130627
  Serious: Yes (Disabling, Other)
  Sender: FDA-Public Use
  Company Number: US-TEVA-376263USA

PATIENT
  Sex: Female

DRUGS (4)
  1. ALENDRONIC ACID [Suspect]
  2. FOSAMAX [Suspect]
  3. BONIVA [Suspect]
  4. IBANDRONATE SODIUM [Suspect]

REACTIONS (3)
  - Tibia fracture [Unknown]
  - Femur fracture [Unknown]
  - Bone disorder [Unknown]
